FAERS Safety Report 15878434 (Version 1)
Quarter: 2019Q1

REPORT INFORMATION
  Report Type: Report from Study
  Country: US (occurrence: US)
  Receive Date: 20190128
  Receipt Date: 20190128
  Transmission Date: 20190417
  Serious: Yes (Other)
  Sender: FDA-Public Use
  Company Number: US-ROCHE-793664

PATIENT

DRUGS (2)
  1. CLADRIBINE. [Suspect]
     Active Substance: CLADRIBINE
     Indication: MANTLE CELL LYMPHOMA
     Dosage: GIVEN OVER 2 H ON DAYS 1-5
     Route: 065
  2. RITUXIMAB. [Suspect]
     Active Substance: RITUXIMAB
     Indication: MANTLE CELL LYMPHOMA
     Dosage: ON DAYS 1, 8, 15, AND 22 WITH THE FIRST CYCLE AND THEN ON DAY 1 WITH SUBSEQUENT CYCLES UPTO 6 CYCLES
     Route: 042

REACTIONS (9)
  - Bone marrow failure [Unknown]
  - Anaemia [Unknown]
  - Oral herpes [Unknown]
  - Varicella zoster virus infection [Unknown]
  - Thrombocytopenia [Unknown]
  - Delirium [Unknown]
  - Pyrexia [Unknown]
  - Neutropenia [Unknown]
  - Pneumonia bacterial [Unknown]
